FAERS Safety Report 5466530-9 (Version None)
Quarter: 2007Q3

REPORT INFORMATION
  Report Type: 
  Country: None (occurrence: None)
  Receive Date: 20070820
  Receipt Date: 20070610
  Transmission Date: 20080115
  Serious: No
  Sender: FDA-Public Use
  Company Number: WAES 0706USA01524

PATIENT
  Age: 97 Year
  Sex: Female

DRUGS (1)
  1. JANUVIA [Suspect]
     Dosage: DAILY/PO
     Route: 048
     Dates: start: 20070609

REACTIONS (2)
  - CHEST DISCOMFORT [None]
  - WRONG TECHNIQUE IN DRUG USAGE PROCESS [None]
